FAERS Safety Report 23956321 (Version 2)
Quarter: 2024Q3

REPORT INFORMATION
  Report Type: Report from Study
  Country: US (occurrence: US)
  Receive Date: 20240610
  Receipt Date: 20240701
  Transmission Date: 20241016
  Serious: No
  Sender: SANOFI AVENTIS
  Company Number: US-SANOFI-02076997

PATIENT
  Age: 86 Year
  Sex: Female

DRUGS (1)
  1. DRONEDARONE [Suspect]
     Active Substance: DRONEDARONE
     Indication: Atrial fibrillation
     Dosage: 400 MG, BID AFTER MEALS
     Dates: start: 202312

REACTIONS (4)
  - Malaise [Unknown]
  - Product storage error [Unknown]
  - Product temperature excursion issue [Unknown]
  - Intentional product misuse [Unknown]
